FAERS Safety Report 7658197-6 (Version None)
Quarter: 2011Q3

REPORT INFORMATION
  Report Type: 
  Country: None (occurrence: None)
  Receive Date: 20110805
  Receipt Date: 20110728
  Transmission Date: 20111222
  Serious: Yes (Other)
  Sender: FDA-Public Use
  Company Number: US-JNJFOC-20110706511

PATIENT
  Sex: Male

DRUGS (4)
  1. LAMOTRIGINE [Suspect]
     Indication: PRODUCT USED FOR UNKNOWN INDICATION
     Route: 065
  2. LAMICTAL [Interacting]
     Indication: PRODUCT USED FOR UNKNOWN INDICATION
     Route: 048
  3. ZYRTEC-D 12 HOUR [Interacting]
     Route: 048
  4. ZYRTEC-D 12 HOUR [Interacting]
     Indication: MULTIPLE ALLERGIES
     Route: 048

REACTIONS (2)
  - GRAND MAL CONVULSION [None]
  - DRUG INTERACTION [None]
